FAERS Safety Report 18048605 (Version 2)
Quarter: 2020Q4

REPORT INFORMATION
  Report Type: Spontaneous
  Country: CH (occurrence: CH)
  Receive Date: 20200721
  Receipt Date: 20201113
  Transmission Date: 20210113
  Serious: Yes (Other)
  Sender: FDA-Public Use
  Company Number: NVSC2020CH193249

PATIENT
  Age: 62 Year
  Sex: Female

DRUGS (6)
  1. ESTRADOT [Suspect]
     Active Substance: ESTRADIOL
     Indication: PRODUCT USED FOR UNKNOWN INDICATION
     Dosage: 37.5 MG
     Route: 065
  2. ESTRADOT [Suspect]
     Active Substance: ESTRADIOL
     Dosage: 75 MG
     Route: 065
  3. ESTRADOT [Suspect]
     Active Substance: ESTRADIOL
     Dosage: 25 MG
     Route: 065
  4. ESTRADOT [Suspect]
     Active Substance: ESTRADIOL
     Dosage: 25 MG
     Route: 065
  5. ESTRADOT [Suspect]
     Active Substance: ESTRADIOL
     Dosage: 50 MG
     Route: 065
  6. LYRICA [Concomitant]
     Active Substance: PREGABALIN
     Indication: NEURALGIA
     Dosage: 100 MG, BID
     Route: 065

REACTIONS (8)
  - Head discomfort [Not Recovered/Not Resolved]
  - Abdominal pain lower [Not Recovered/Not Resolved]
  - Neuralgia [Not Recovered/Not Resolved]
  - Fatigue [Not Recovered/Not Resolved]
  - Oestradiol increased [Recovering/Resolving]
  - Concomitant disease aggravated [Not Recovered/Not Resolved]
  - Incorrect dose administered [Unknown]
  - Burning sensation [Not Recovered/Not Resolved]
